FAERS Safety Report 16508830 (Version 3)
Quarter: 2020Q2

REPORT INFORMATION
  Report Type: Report from Study
  Country: US (occurrence: US)
  Receive Date: 20190702
  Receipt Date: 20200605
  Transmission Date: 20200713
  Serious: Yes (Hospitalization, Other)
  Sender: FDA-Public Use
  Company Number: US-ROCHE-2346305

PATIENT
  Sex: Female

DRUGS (2)
  1. OCREVUS [Suspect]
     Active Substance: OCRELIZUMAB
     Indication: RELAPSING-REMITTING MULTIPLE SCLEROSIS
     Dosage: DATE OF TREATMENT: 09/JUL/2019, 08/JAN/2020
     Route: 042
     Dates: start: 20181127
  2. OCREVUS [Suspect]
     Active Substance: OCRELIZUMAB
     Dosage: ONGOING:YES?9/JUL/2019, DATE OF TREATMENT
     Route: 042
     Dates: start: 20181211

REACTIONS (3)
  - Pneumonia [Recovered/Resolved]
  - Omphalitis [Recovered/Resolved]
  - Urinary tract infection [Recovered/Resolved]
